FAERS Safety Report 5514020-7 (Version None)
Quarter: 2007Q4

REPORT INFORMATION
  Report Type: 
  Country: None (occurrence: None)
  Receive Date: 20071113
  Receipt Date: 20071105
  Transmission Date: 20080405
  Serious: Yes (Hospitalization)
  Sender: FDA-Public Use
  Company Number: FR-AVENTIS-200713482FR

PATIENT
  Age: 44 Year
  Sex: Male

DRUGS (6)
  1. TAVANIC [Suspect]
     Indication: LEPTOSPIROSIS
     Route: 042
     Dates: start: 20070904, end: 20070907
  2. TAVANIC [Suspect]
     Route: 048
     Dates: start: 20070908, end: 20070910
  3. CLAFORAN [Suspect]
     Indication: LEPTOSPIROSIS
     Route: 042
     Dates: start: 20070904, end: 20070910
  4. ACUPAN [Suspect]
     Route: 042
     Dates: start: 20070904, end: 20070910
  5. PARACETAMOL [Suspect]
     Route: 042
     Dates: start: 20070904, end: 20070908
  6. AMIKLIN                            /00391001/ [Concomitant]
     Indication: LEPTOSPIROSIS
     Route: 042
     Dates: start: 20070901, end: 20070901

REACTIONS (2)
  - CYTOLYTIC HEPATITIS [None]
  - HEPATOCELLULAR DAMAGE [None]
